FAERS Safety Report 25306956 (Version 1)
Quarter: 2025Q2

REPORT INFORMATION
  Report Type: Spontaneous
  Country: US (occurrence: None)
  Receive Date: 20250511
  Receipt Date: 20250511
  Transmission Date: 20250716
  Serious: Yes (Hospitalization)
  Sender: FDA-CTU
  Company Number: None

PATIENT
  Age: 63 Year
  Sex: Female
  Weight: 68.04 kg

DRUGS (1)
  1. PROLIA [Suspect]
     Active Substance: DENOSUMAB
     Route: 058

REACTIONS (4)
  - Device defective [None]
  - Device breakage [None]
  - Femur fracture [None]
  - Muscular weakness [None]

NARRATIVE: CASE EVENT DATE: 20160107
